FAERS Safety Report 7816240-5 (Version None)
Quarter: 2011Q4

REPORT INFORMATION
  Report Type: 
  Country: None (occurrence: None)
  Receive Date: 20111016
  Receipt Date: 20111007
  Transmission Date: 20120403
  Serious: Yes (Other)
  Sender: FDA-Public Use
  Company Number: DK-CELGENEUS-044-20785-11100983

PATIENT

DRUGS (1)
  1. THALIDOMIDE [Suspect]
     Dosage: 50-100MG
     Route: 048

REACTIONS (23)
  - SYMPTOM MASKED [None]
  - RAYNAUD'S PHENOMENON [None]
  - NEUROPATHY PERIPHERAL [None]
  - THROMBOCYTOSIS [None]
  - DEPRESSION [None]
  - NAUSEA [None]
  - TREMOR [None]
  - NERVOUSNESS [None]
  - SEDATION [None]
  - FACIAL PARESIS [None]
  - RESTLESS LEGS SYNDROME [None]
  - POLYDIPSIA [None]
  - DIARRHOEA [None]
  - HEADACHE [None]
  - DIZZINESS [None]
  - RASH [None]
  - EXCESSIVE EYE BLINKING [None]
  - POLYURIA [None]
  - GASTROINTESTINAL DISORDER [None]
  - WEIGHT INCREASED [None]
  - FACE OEDEMA [None]
  - MALAISE [None]
  - ERECTILE DYSFUNCTION [None]
